FAERS Safety Report 6897311-7 (Version None)
Quarter: 2010Q3

REPORT INFORMATION
  Report Type: 
  Country: None (occurrence: None)
  Receive Date: 20100802
  Receipt Date: 20070429
  Transmission Date: 20110219
  Serious: No
  Sender: FDA-Public Use
  Company Number: US-PFIZER INC-2007035235

PATIENT
  Sex: Female
  Weight: 70 kg

DRUGS (10)
  1. LYRICA [Suspect]
     Indication: NERVE COMPRESSION
     Dates: start: 20070401
  2. LYRICA [Suspect]
     Indication: BACK PAIN
  3. LYRICA [Suspect]
     Indication: OSTEOPOROSIS
  4. PREVACID [Concomitant]
  5. LOTREL [Concomitant]
  6. TOPROL-XL [Concomitant]
  7. PROZAC [Concomitant]
  8. WELLBUTRIN [Concomitant]
  9. TRAZODONE [Concomitant]
  10. LORTAB [Concomitant]

REACTIONS (2)
  - SOMNOLENCE [None]
  - TINNITUS [None]
